FAERS Safety Report 17648948 (Version 2)
Quarter: 2020Q3

REPORT INFORMATION
  Report Type: Spontaneous
  Country: US (occurrence: US)
  Receive Date: 20200409
  Receipt Date: 20200708
  Transmission Date: 20201102
  Serious: No
  Sender: FDA-Public Use
  Company Number: US-STRIDES ARCOLAB LIMITED-2020SP003165

PATIENT
  Sex: Female

DRUGS (1)
  1. OMEGA?3?ACID ETHYL ESTERS. [Suspect]
     Active Substance: OMEGA-3-ACID ETHYL ESTERS
     Indication: BLOOD TRIGLYCERIDES
     Dosage: 2 DOSAGE FORM (1 GRAM CAPSULE)
     Route: 065
     Dates: start: 20200226

REACTIONS (5)
  - Product odour abnormal [Unknown]
  - Product physical issue [Unknown]
  - Poor quality product administered [Unknown]
  - Product leakage [Unknown]
  - No adverse event [Unknown]
